FAERS Safety Report 5362419-4 (Version None)
Quarter: 2007Q2

REPORT INFORMATION
  Report Type: 
  Country: None (occurrence: None)
  Receive Date: 20070619
  Receipt Date: 20060314
  Transmission Date: 20071010
  Serious: Yes (Hospitalization)
  Sender: FDA-Public Use
  Company Number: US-ASTRAZENECA-2005UW18731

PATIENT
  Age: 5612 Day
  Sex: Male
  Weight: 75 kg

DRUGS (16)
  1. SEROQUEL [Suspect]
     Indication: SCHIZOPHRENIA
     Route: 048
     Dates: start: 20051202
  2. ADVAIR DISKUS 100/50 [Concomitant]
     Dosage: ONE PUFF IN AM AND PM 100/50
  3. ALLEGRA [Concomitant]
     Route: 048
  4. NASONEX [Concomitant]
     Dosage: ONE SPRAY EACH NOSTRIL IN AM AND PM
  5. ALBUTEROL [Concomitant]
     Dosage: TWO PUFFS
  6. SEROQUEL [Concomitant]
     Dosage: 100 MG IN THE AM AND 150 MG HS
     Route: 048
     Dates: start: 20051110
  7. SEROQUEL [Concomitant]
     Route: 048
     Dates: end: 20051120
  8. GEODON [Concomitant]
  9. ABILIFY [Concomitant]
  10. DEPAKOTE [Concomitant]
     Dates: end: 20050605
  11. TEGRETOL [Concomitant]
  12. TRILEPTAL [Concomitant]
  13. CELEXA [Concomitant]
  14. LEXAPRO [Concomitant]
  15. RISPERDAL [Concomitant]
     Dates: end: 20051110
  16. LITHIUM CARBONATE [Concomitant]
     Dates: start: 20051001

REACTIONS (1)
  - SCHIZOPHRENIA [None]
